FAERS Safety Report 10687357 (Version 1)
Quarter: 2014Q4

REPORT INFORMATION
  Report Type: Spontaneous
  Country: US (occurrence: None)
  Receive Date: 20141231
  Receipt Date: 20141231
  Transmission Date: 20150529
  Serious: Yes (Other)
  Sender: FDA-Public Use
  Company Number: None

PATIENT
  Age: 82 Year
  Sex: Male

DRUGS (2)
  1. GLEEVEC [Suspect]
     Active Substance: IMATINIB MESYLATE
     Indication: GASTROINTESTINAL CARCINOMA
     Dosage: TAKE 2 DAILY
     Route: 048
     Dates: start: 20140708
  2. GLEEVEC [Suspect]
     Active Substance: IMATINIB MESYLATE
     Indication: MALIGNANT CONNECTIVE TISSUE NEOPLASM
     Dosage: TAKE 2 DAILY
     Route: 048
     Dates: start: 20140708

REACTIONS (2)
  - Dyspnoea [None]
  - Blood pressure increased [None]

NARRATIVE: CASE EVENT DATE: 20141229
